FAERS Safety Report 16661114 (Version 5)
Quarter: 2020Q4

REPORT INFORMATION
  Report Type: Spontaneous
  Country: US (occurrence: US)
  Receive Date: 20190802
  Receipt Date: 20201001
  Transmission Date: 20210113
  Serious: No
  Sender: FDA-Public Use
  Company Number: US-PFIZER INC-2019328978

PATIENT
  Age: 58 Year
  Sex: Female
  Weight: 50 kg

DRUGS (2)
  1. DILANTIN [Suspect]
     Active Substance: PHENYTOIN
     Indication: GENERALISED TONIC-CLONIC SEIZURE
     Dosage: 200 MG, 2X/DAY (100 MG, 2 BY MOUTH TWICE DAILY) (2 CAPS AM 2 CAPS PM)
     Route: 048
     Dates: start: 1980
  2. DILANTIN [Suspect]
     Active Substance: PHENYTOIN
     Dosage: 200 MG, 2X/DAY (100MG 2 IN THE MORNING AND 2 AT NIGHT)/TWO 100MG, CAPSULES, BY MOUTH, IN THE MORNING
     Route: 048
     Dates: start: 1988

REACTIONS (4)
  - Bronchitis [Unknown]
  - Pain in extremity [Recovering/Resolving]
  - Neck pain [Recovering/Resolving]
  - Osteoarthritis [Unknown]

NARRATIVE: CASE EVENT DATE: 2017
